FAERS Safety Report 7475740-0 (Version None)
Quarter: 2011Q2

REPORT INFORMATION
  Report Type: 
  Country: None (occurrence: None)
  Receive Date: 20110504
  Receipt Date: 20110426
  Transmission Date: 20111010
  Serious: Yes (Hospitalization, Other)
  Sender: FDA-Public Use
  Company Number: EU-2011-10043

PATIENT
  Sex: Female

DRUGS (5)
  1. DIOVAN [Concomitant]
  2. ASPIRIN [Concomitant]
  3. SAMSCA [Suspect]
     Indication: INAPPROPRIATE ANTIDIURETIC HORMONE SECRETION
     Dosage: 15 MG MILLIGRAM(S), QD, ORAL
     Route: 048
     Dates: start: 20101106, end: 20101107
  4. BELOC (METOPROLOL SUCCINATE) [Concomitant]
  5. ZOCOR [Concomitant]

REACTIONS (3)
  - RENAL FAILURE ACUTE [None]
  - DELIRIUM [None]
  - RAPID CORRECTION OF HYPONATRAEMIA [None]
